FAERS Safety Report 7074849-3 (Version None)
Quarter: 2010Q4

REPORT INFORMATION
  Report Type: 
  Country: None (occurrence: None)
  Receive Date: 20101029
  Receipt Date: 20101018
  Transmission Date: 20110411
  Serious: Yes (Hospitalization, Other)
  Sender: FDA-Public Use
  Company Number: US-ELI_LILLY_AND_COMPANY-US201010004147

PATIENT
  Sex: Female
  Weight: 72.562 kg

DRUGS (5)
  1. BYETTA [Suspect]
     Indication: TYPE 2 DIABETES MELLITUS
     Dosage: 5 UG, 2/D
     Route: 058
  2. BYETTA [Suspect]
     Dosage: 10 UG, 2/D
     Route: 058
  3. BYETTA [Suspect]
     Dosage: 5 UG, 2/D
     Route: 058
  4. METFORMIN [Concomitant]
     Dosage: UNK, 2/D
  5. CHEMOTHERAPEUTICS [Concomitant]
     Dosage: UNK, UNKNOWN

REACTIONS (11)
  - BLOOD GLUCOSE DECREASED [None]
  - ESCHERICHIA URINARY TRACT INFECTION [None]
  - FALL [None]
  - HALLUCINATION [None]
  - MACULAR DEGENERATION [None]
  - MALAISE [None]
  - PYREXIA [None]
  - SYNCOPE [None]
  - TREMOR [None]
  - VISUAL ACUITY REDUCED [None]
  - VOMITING [None]
